FAERS Safety Report 5335973-6 (Version None)
Quarter: 2007Q2

REPORT INFORMATION
  Report Type: 
  Country: None (occurrence: None)
  Receive Date: 20070305
  Receipt Date: 20060504
  Transmission Date: 20071010
  Serious: Yes (Hospitalization)
  Sender: FDA-Public Use
  Company Number: USGLA-S-20060013

PATIENT
  Sex: Female

DRUGS (8)
  1. NAVELBINE [Suspect]
     Indication: BREAST CANCER METASTATIC
     Dates: start: 20060329
  2. LAPATINIB [Suspect]
     Indication: BREAST CANCER METASTATIC
     Dates: start: 20060329
  3. METFORMIN HYDROCHLORIDE [Concomitant]
  4. ATORVASTATIN CALCIUM [Concomitant]
  5. DYAZIDE [Concomitant]
  6. PROMETHAZINE HCL [Concomitant]
  7. HYDRMORPHONE HYDROCHLORIDE [Concomitant]
  8. ONDANSETRON HCL [Concomitant]

REACTIONS (4)
  - CHILLS [None]
  - FATIGUE [None]
  - HAEMOGLOBIN DECREASED [None]
  - PYREXIA [None]
